FAERS Safety Report 8958517 (Version 1)
Quarter: 2012Q4

REPORT INFORMATION
  Report Type: Spontaneous
  Country: GB (occurrence: None)
  Receive Date: 20121109
  Receipt Date: 20121109
  Transmission Date: 20130627
  Serious: Yes (Death, Life-Threatening, Hospitalization, Disabling)
  Sender: FDA-Public Use
  Company Number: 2012033791

PATIENT
  Age: 74 Year
  Sex: Female

DRUGS (14)
  1. RIASTAP [Suspect]
     Indication: INTRA-THORACIC AORTIC ANEURYSM REPAIR
     Route: 042
     Dates: start: 20121017, end: 20121017
  2. PLACEBO [Suspect]
  3. DILTIAZEM (DILTIAZEM) [Concomitant]
  4. GLYCERYL TRINITRATE (GLYCERYL TRINITRATE) [Concomitant]
  5. ASPIRINE (ACETYLSALICYLIC ACID) [Concomitant]
  6. CETRIZIN (CEFATRIZINE PROPYLENGLYCOLATE SULFATE) [Concomitant]
  7. SALBUTAMOL (SALBUTAMOL) [Concomitant]
  8. OMEPRAZOLE (OMEPRAZOLE) [Concomitant]
  9. FRUSEMIDE [Concomitant]
  10. TIOTROPIUM (TIOTROPIUM) [Concomitant]
  11. BECLOMETHASONE (BECLOMETASONE DIPROPIONATE) [Concomitant]
  12. ROSUVASTATIN (ROSUVASTATIN) [Concomitant]
  13. DIGOXIN (DIGOXIN) [Concomitant]
  14. HEPARIN (HEPARIN) [Concomitant]

REACTIONS (4)
  - Ischaemic cerebral infarction [None]
  - Cardiac tamponade [None]
  - Renal failure acute [None]
  - Procedural complication [None]
